FAERS Safety Report 13505372 (Version 6)
Quarter: 2017Q3

REPORT INFORMATION
  Report Type: Report from Study
  Country: US (occurrence: US)
  Receive Date: 20170502
  Receipt Date: 20170915
  Transmission Date: 20171127
  Serious: Yes (Death, Hospitalization)
  Sender: FDA-Public Use
  Company Number: US-ACTELION-A-NJ2017-153225

PATIENT
  Age: 77 Year
  Sex: Female
  Weight: 77.98 kg

DRUGS (6)
  1. ELIQUIS [Concomitant]
     Active Substance: APIXABAN
  2. NIFEDIPINE. [Concomitant]
     Active Substance: NIFEDIPINE
  3. TRACLEER [Suspect]
     Active Substance: BOSENTAN
     Indication: PULMONARY HYPERTENSION
     Dosage: 125 MG, BID
     Route: 048
  4. DILTIAZEM. [Concomitant]
     Active Substance: DILTIAZEM
  5. VENTAVIS [Concomitant]
     Active Substance: ILOPROST
     Indication: PULMONARY ARTERIAL HYPERTENSION
  6. SILDENAFIL CITRATE. [Concomitant]
     Active Substance: SILDENAFIL CITRATE

REACTIONS (8)
  - Cervical vertebral fracture [Unknown]
  - Malaise [Unknown]
  - Dyspnoea [Unknown]
  - Neck injury [Unknown]
  - Respiratory disorder [Unknown]
  - Death [Fatal]
  - Fall [Unknown]
  - Wheezing [Unknown]

NARRATIVE: CASE EVENT DATE: 20170823
